FAERS Safety Report 12645776 (Version 2)
Quarter: 2016Q3

REPORT INFORMATION
  Report Type: Spontaneous
  Country: None (occurrence: CZ)
  Receive Date: 20160811
  Receipt Date: 20160823
  Transmission Date: 20161109
  Serious: Yes (Life-Threatening, Hospitalization)
  Sender: FDA-Public Use
  Company Number: CZ-ALLERGAN-1665555US

PATIENT
  Age: 38 Year
  Sex: Female

DRUGS (2)
  1. ESMYA [Suspect]
     Active Substance: ULIPRISTAL ACETATE
     Indication: UTERINE LEIOMYOMA
     Dosage: 5 MG, QD
     Route: 048
     Dates: start: 201604, end: 201606
  2. ESMYA [Suspect]
     Active Substance: ULIPRISTAL ACETATE
     Indication: MENORRHAGIA

REACTIONS (1)
  - Endometrial cancer [Unknown]

NARRATIVE: CASE EVENT DATE: 20160726
